FAERS Safety Report 12218331 (Version 1)
Quarter: 2016Q1

REPORT INFORMATION
  Report Type: Report from Study
  Country: DE (occurrence: DE)
  Receive Date: 20160329
  Receipt Date: 20160329
  Transmission Date: 20160526
  Serious: Yes (Other)
  Sender: FDA-Public Use
  Company Number: DE-009507513-1603DEU008991

PATIENT

DRUGS (2)
  1. TEMOZOLOMIDE. [Suspect]
     Active Substance: TEMOZOLOMIDE
     Dosage: 150 TO 200 MG/M2, ONCE DAILY FOR 5 DAYS EVERY 4 WEEKS
  2. TEMOZOLOMIDE. [Suspect]
     Active Substance: TEMOZOLOMIDE
     Indication: GLIOBLASTOMA
     Dosage: 75 MG/M2, QD

REACTIONS (6)
  - Subdural haematoma [Unknown]
  - Vomiting [Unknown]
  - Fatigue [Unknown]
  - Pneumonia [Unknown]
  - Haematotoxicity [Unknown]
  - Pulmonary artery thrombosis [Unknown]
